FAERS Safety Report 8317600-9 (Version None)
Quarter: 2012Q2

REPORT INFORMATION
  Report Type: 
  Country: None (occurrence: None)
  Receive Date: 20120427
  Receipt Date: 20110802
  Transmission Date: 20120825
  Serious: No
  Sender: FDA-Public Use
  Company Number: US-GLAXOSMITHKLINE-A0939401A

PATIENT
  Age: 51 Year
  Sex: Female

DRUGS (4)
  1. ZOFRAN [Suspect]
     Indication: PROPHYLAXIS OF NAUSEA AND VOMITING
     Dosage: 1TAB TWICE PER DAY
     Route: 048
  2. METOPROLOL TARTRATE [Concomitant]
  3. METOCLOPRAMIDE [Concomitant]
  4. PRILOSEC [Concomitant]

REACTIONS (2)
  - PERIPHERAL COLDNESS [None]
  - HYPOAESTHESIA [None]
